FAERS Safety Report 5114569-5 (Version None)
Quarter: 2006Q3

REPORT INFORMATION
  Report Type: 
  Country: None (occurrence: None)
  Receive Date: 20060926
  Receipt Date: 20060717
  Transmission Date: 20061208
  Serious: Yes (Hospitalization, Other)
  Sender: FDA-Public Use
  Company Number: PHBS2006BR10860

PATIENT
  Age: 66 Year
  Sex: Female
  Weight: 78.8 kg

DRUGS (9)
  1. PREXIGE [Suspect]
     Indication: BACK PAIN
     Dosage: 400 MG, PRN
  2. PREXIGE [Suspect]
     Dosage: 100 MG, PRN2SD
  3. PREXIGE [Suspect]
     Dosage: 100 MG, PRN
  4. ZELMAC [Suspect]
     Indication: IRRITABLE BOWEL SYNDROME
     Dosage: 6 MG, BID
     Route: 048
  5. ZELMAC [Suspect]
     Dosage: 6 MG, QD
  6. DILACORON [Concomitant]
     Indication: ARRHYTHMIA
     Dosage: 80 MG/DAY
  7. PLANTABEN [Concomitant]
  8. MACROGOL [Concomitant]
  9. DIOVAN HCT [Concomitant]
     Dates: start: 20060620

REACTIONS (7)
  - ANAEMIA [None]
  - CATARACT OPERATION [None]
  - DIARRHOEA [None]
  - MICTURITION URGENCY [None]
  - NEPHRECTOMY [None]
  - RENAL ANEURYSM [None]
  - TREATMENT NONCOMPLIANCE [None]
